FAERS Safety Report 6831273-3 (Version None)
Quarter: 2010Q3

REPORT INFORMATION
  Report Type: 
  Country: None (occurrence: None)
  Receive Date: 20100712
  Receipt Date: 20100709
  Transmission Date: 20110219
  Serious: Yes (Other)
  Sender: FDA-Public Use
  Company Number: JP-PFIZER INC-2010081380

PATIENT
  Age: 35 Year
  Sex: Female

DRUGS (2)
  1. SOLANAX [Suspect]
     Dosage: 2.4 MG, 3X/DAY
     Route: 048
     Dates: start: 20100101
  2. MYDRIN P [Concomitant]
     Dosage: UNK
     Route: 031

REACTIONS (2)
  - ABNORMAL SENSATION IN EYE [None]
  - MYDRIASIS [None]
